FAERS Safety Report 6135598-9 (Version None)
Quarter: 2009Q1

REPORT INFORMATION
  Report Type: 
  Country: None (occurrence: None)
  Receive Date: 20090327
  Receipt Date: 20070614
  Transmission Date: 20090719
  Serious: Yes (Hospitalization, Other)
  Sender: FDA-Public Use
  Company Number: PHMT2007CA01407

PATIENT
  Sex: Female

DRUGS (12)
  1. EXELON [Suspect]
     Indication: DEMENTIA ALZHEIMER'S TYPE
     Dosage: 1.5 MG , QHS
     Route: 048
     Dates: start: 20061206
  2. EXELON [Suspect]
     Dosage: 1.5 MG, BID
     Route: 048
  3. EXELON [Suspect]
     Dosage: 1.5 MG QAM AND 3.0 MG QHS
     Route: 048
  4. EXELON [Suspect]
     Dosage: 3 MG, BID
     Route: 048
  5. EXELON [Suspect]
     Dosage: 3 MG QAM AND 4.5 MG QHS
     Dates: end: 20070501
  6. LOPRESOR [Suspect]
     Dosage: 100 MG, QD
  7. CARDURA /JOR/ [Suspect]
     Dosage: 1 MG, QHS
  8. ATACAND HCT [Suspect]
     Dosage: 16 MG, QD
  9. NORVASC [Concomitant]
     Dosage: 10 MG, QD
  10. RIVASA [Concomitant]
     Dosage: 80 MG, QD
  11. ALTACE [Concomitant]
     Dosage: 10 MG, QD
  12. LIPITOR [Concomitant]
     Dosage: 20 MG, QD

REACTIONS (8)
  - ANOREXIA [None]
  - BRADYCARDIA [None]
  - CARDIOMEGALY [None]
  - DRUG INTOLERANCE [None]
  - GRANULOMA [None]
  - LOSS OF CONSCIOUSNESS [None]
  - MALNUTRITION [None]
  - WEIGHT DECREASED [None]
